FAERS Safety Report 4383572-5 (Version None)
Quarter: 2004Q2

REPORT INFORMATION
  Report Type: 
  Country: None (occurrence: None)
  Receive Date: 20040614
  Receipt Date: 20040312
  Transmission Date: 20050107
  Serious: Yes (Disabling)
  Sender: FDA-Public Use
  Company Number: 2004194265US

PATIENT
  Age: 60 Year
  Sex: Female

DRUGS (2)
  1. ZYVOX [Suspect]
     Indication: STAPHYLOCOCCAL INFECTION
     Dosage: UNK
     Dates: start: 20030819, end: 20031015
  2. LASIX [Concomitant]

REACTIONS (1)
  - NEUROPATHY [None]
